FAERS Safety Report 17181833 (Version 1)
Quarter: 2019Q4

REPORT INFORMATION
  Report Type: Spontaneous
  Country: FR (occurrence: FR)
  Receive Date: 20191220
  Receipt Date: 20191220
  Transmission Date: 20200122
  Serious: Yes (Other)
  Sender: FDA-Public Use
  Company Number: FR-ALLERGAN-1952153US

PATIENT
  Sex: Female

DRUGS (1)
  1. ESCITALOPRAM OXALATE - BP [Suspect]
     Active Substance: ESCITALOPRAM OXALATE
     Indication: PRODUCT USED FOR UNKNOWN INDICATION
     Route: 065

REACTIONS (14)
  - Anorgasmia [Unknown]
  - Rhinorrhoea [Unknown]
  - Suicidal ideation [Unknown]
  - Dry mouth [Unknown]
  - Nightmare [Unknown]
  - Akathisia [Unknown]
  - Amnesia [Unknown]
  - Inappropriate affect [Unknown]
  - Ear discomfort [Unknown]
  - Feeling drunk [Unknown]
  - Emotional poverty [Unknown]
  - Flashback [Unknown]
  - Diarrhoea [Unknown]
  - Exposure via partner [Unknown]

NARRATIVE: CASE EVENT DATE: 2018
